FAERS Safety Report 9916920 (Version 1)
Quarter: 2014Q1

REPORT INFORMATION
  Report Type: Spontaneous
  Country: US (occurrence: US)
  Receive Date: 20140221
  Receipt Date: 20140221
  Transmission Date: 20141002
  Serious: Yes (Other)
  Sender: FDA-Public Use
  Company Number: US-PFIZER INC-2014049808

PATIENT
  Age: 77 Year
  Sex: Female

DRUGS (4)
  1. NORVASC [Suspect]
     Dosage: UNK
  2. LIPITOR [Suspect]
     Dosage: UNK
  3. NEURONTIN [Suspect]
     Dosage: UNK
  4. LYRICA [Suspect]
     Dosage: UNK

REACTIONS (2)
  - Gangrene [Unknown]
  - Infection [Unknown]
